FAERS Safety Report 15565016 (Version 1)
Quarter: 2018Q4

REPORT INFORMATION
  Report Type: Spontaneous
  Country: US (occurrence: US)
  Receive Date: 20181030
  Receipt Date: 20181030
  Transmission Date: 20190205
  Serious: Yes (Other)
  Sender: FDA-Public Use
  Company Number: US-AUROBINDO-AUR-APL-2018-052074

PATIENT
  Age: 7 Year
  Sex: Male

DRUGS (6)
  1. ETOPOSIDE. [Suspect]
     Active Substance: ETOPOSIDE
     Indication: BONE MARROW DISORDER
     Dosage: DAYS 1-5 ; CYCLICAL
     Route: 042
  2. CARBOPLATIN. [Suspect]
     Active Substance: CARBOPLATIN
     Indication: BONE MARROW DISORDER
     Dosage: DAYS 1-2 ; CYCLICAL
     Route: 042
  3. ETOPOSIDE. [Suspect]
     Active Substance: ETOPOSIDE
     Dosage: DAYS 1-3 ; CYCLICAL
     Route: 042
  4. CARBOPLATIN. [Suspect]
     Active Substance: CARBOPLATIN
     Dosage: DAYS 1 ; CYCLICAL
     Route: 042
  5. IFOSFAMIDE. [Suspect]
     Active Substance: IFOSFAMIDE
     Indication: BONE MARROW DISORDER
     Dosage: DAYS 1-3 ; CYCLICAL
     Route: 042
  6. IFOSFAMIDE. [Suspect]
     Active Substance: IFOSFAMIDE
     Dosage: DAYS 1-5 ; CYCLICAL
     Route: 042

REACTIONS (5)
  - Toxicity to various agents [Unknown]
  - Ataxia [Unknown]
  - Vomiting [Unknown]
  - Cholecystitis [Unknown]
  - Neutropenia [Unknown]
